FAERS Safety Report 9682136 (Version 1)
Quarter: 2013Q4

REPORT INFORMATION
  Report Type: Spontaneous
  Country: DE (occurrence: DE)
  Receive Date: 20131111
  Receipt Date: 20131111
  Transmission Date: 20140711
  Serious: Yes (Other)
  Sender: FDA-Public Use
  Company Number: DE-BAXTER-2013BAX044262

PATIENT
  Sex: Male

DRUGS (2)
  1. KIOVIG (1 G/10 ML) [Suspect]
     Indication: LIVER DISORDER
     Route: 064
  2. KIOVIG (1 G/10 ML) [Suspect]
     Indication: OFF LABEL USE

REACTIONS (4)
  - Coagulation factor deficiency [Recovering/Resolving]
  - Hypoalbuminaemia [Recovering/Resolving]
  - Hypoglycaemia [Recovering/Resolving]
  - Foetal exposure during pregnancy [Recovered/Resolved]
